FAERS Safety Report 10933076 (Version 1)
Quarter: 2015Q1

REPORT INFORMATION
  Report Type: Spontaneous
  Country: US (occurrence: None)
  Receive Date: 20150319
  Receipt Date: 20150319
  Transmission Date: 20150721
  Serious: No
  Sender: FDA-Public Use
  Company Number: 2015CT000045

PATIENT
  Age: 58 Year
  Sex: Female

DRUGS (1)
  1. KORLYM [Suspect]
     Active Substance: MIFEPRISTONE
     Indication: HYPERADRENOCORTICISM
     Route: 048
     Dates: start: 20140517

REACTIONS (3)
  - Dyspnoea [None]
  - Pneumonia [None]
  - Breast pain [None]

NARRATIVE: CASE EVENT DATE: 20150213
